FAERS Safety Report 12845190 (Version 1)
Quarter: 2016Q4

REPORT INFORMATION
  Report Type: Spontaneous
  Country: FR (occurrence: FR)
  Receive Date: 20161013
  Receipt Date: 20161013
  Transmission Date: 20170207
  Serious: Yes (Hospitalization)
  Sender: FDA-Public Use
  Company Number: FR-PFIZER INC-2016470679

PATIENT
  Age: 81 Year
  Sex: Male

DRUGS (13)
  1. AMLODIPIN /00972401/ [Concomitant]
     Active Substance: AMLODIPINE BESYLATE
     Dosage: UNK
  2. CARTEOL LP [Concomitant]
     Active Substance: CARTEOLOL HYDROCHLORIDE
     Dosage: 1 %
  3. TARGOCID [Suspect]
     Active Substance: TEICOPLANIN
     Indication: STAPHYLOCOCCAL INFECTION
     Dosage: UNK
     Route: 042
     Dates: start: 20160226
  4. INEXIUM /01479302/ [Suspect]
     Active Substance: ESOMEPRAZOLE MAGNESIUM
     Dosage: UNK
  5. SIMVASTATIN. [Concomitant]
     Active Substance: SIMVASTATIN
     Dosage: UNK
  6. UVEDOSE [Concomitant]
     Active Substance: CHOLECALCIFEROL
     Dosage: 100000 IU
  7. PREVISCAN /00789001/ [Concomitant]
     Active Substance: FLUINDIONE
     Dosage: 20 MG, UNK
  8. FLECAINE [Concomitant]
     Active Substance: FLECAINIDE
     Dosage: UNK
  9. CORTANCYL [Concomitant]
     Active Substance: PREDNISONE
     Dosage: UNK
  10. OROCAL VITAMINE D3 /00278001/ [Concomitant]
     Dosage: 500 MG/200 IU
  11. DALACINE [Suspect]
     Active Substance: CLINDAMYCIN HYDROCHLORIDE
     Indication: STAPHYLOCOCCAL INFECTION
     Dosage: UNK
     Route: 042
     Dates: start: 20160229
  12. PIPERACILLINE / TAZOBACTAM MYLAN [Suspect]
     Active Substance: PIPERACILLIN SODIUM\TAZOBACTAM SODIUM
     Indication: ENTEROBACTER INFECTION
     Dosage: UNK
     Route: 042
     Dates: start: 20160303
  13. LEVOTHYROX [Concomitant]
     Active Substance: LEVOTHYROXINE
     Dosage: 125 UG

REACTIONS (1)
  - Histiocytosis haematophagic [Recovered/Resolved]

NARRATIVE: CASE EVENT DATE: 2016
